FAERS Safety Report 6662306-5 (Version None)
Quarter: 2010Q1

REPORT INFORMATION
  Report Type: 
  Country: None (occurrence: None)
  Receive Date: 20100331
  Receipt Date: 20100322
  Transmission Date: 20100710
  Serious: Yes (Hospitalization, Disabling, Other)
  Sender: FDA-Public Use
  Company Number: PHHY2010US07465

PATIENT
  Sex: Female
  Weight: 78.005 kg

DRUGS (18)
  1. EXTAVIA [Suspect]
     Indication: MULTIPLE SCLEROSIS
     Dosage: 0.25 MG, QOD
     Route: 058
     Dates: start: 20091216, end: 20100317
  2. EXTAVIA [Suspect]
     Dosage: 1 ML, UNK
     Route: 058
  3. GABAPENTIN [Concomitant]
     Dosage: 300 MG, TID
  4. CITALOPRAM HYDROBROMIDE [Concomitant]
     Dosage: 40 MG, QD
  5. LEVOXYL [Concomitant]
     Dosage: 1.75 MG,UNK
  6. TRAZODONE [Concomitant]
     Dosage: 200MG TO 600MG QHS (AVERAGE 300MG QHS)
  7. IBUPROFEN [Concomitant]
     Dosage: 600MG
  8. VITAMINS [Concomitant]
  9. CELEXA [Concomitant]
     Dosage: 20 MG, BID
  10. KLONOPIN [Concomitant]
     Dosage: 1 MG, QD
  11. SYNTHROID [Concomitant]
     Dosage: 0.175 MG, QD
  12. NEURONTIN [Concomitant]
     Dosage: 300 MG, TID
  13. PREDNISONE [Concomitant]
     Dosage: 50 MG FOR 3 DAYS
  14. PREDNISONE [Concomitant]
     Dosage: 40 MG FOR 3 DAYS
  15. PREDNISONE [Concomitant]
     Dosage: 30 MG FOR 3 DAYS
  16. PREDNISONE [Concomitant]
     Dosage: 20 MG FOR 3 DAYS
  17. PREDNISONE [Concomitant]
     Dosage: 10 MG FOR 3 DAYS
  18. SOLU-MEDROL [Concomitant]
     Dosage: 1000 MG, UNK
     Route: 042
     Dates: start: 20100316

REACTIONS (11)
  - ASTHENIA [None]
  - BALANCE DISORDER [None]
  - CHILLS [None]
  - COORDINATION ABNORMAL [None]
  - DYSARTHRIA [None]
  - FATIGUE [None]
  - INFLUENZA LIKE ILLNESS [None]
  - MULTIPLE SCLEROSIS [None]
  - PAIN [None]
  - VISION BLURRED [None]
  - WALKING AID USER [None]
